FAERS Safety Report 7200752-1 (Version None)
Quarter: 2010Q4

REPORT INFORMATION
  Report Type: 
  Country: None (occurrence: None)
  Receive Date: 20101228
  Receipt Date: 20101217
  Transmission Date: 20110411
  Serious: Yes (Life-Threatening, Hospitalization)
  Sender: FDA-Public Use
  Company Number: DK-TEVA-260189ISR

PATIENT
  Age: 58 Year
  Sex: Female
  Weight: 55 kg

DRUGS (2)
  1. COPAXONE [Suspect]
     Indication: RELAPSING-REMITTING MULTIPLE SCLEROSIS
     Route: 058
     Dates: start: 20081016
  2. FERRO+VITAMIN C [Concomitant]
     Indication: HAEMOGLOBIN DECREASED
     Dosage: 330 MG/ 60 MG
     Route: 048
     Dates: start: 20080823

REACTIONS (1)
  - ENDOMETRIAL CANCER STAGE I [None]
